FAERS Safety Report 4961962-7 (Version None)
Quarter: 2006Q2

REPORT INFORMATION
  Report Type: 
  Country: None (occurrence: None)
  Receive Date: 20060404
  Receipt Date: 20041026
  Transmission Date: 20061013
  Serious: Yes (Disabling)
  Sender: FDA-Public Use
  Company Number: US-ROCHE-384576

PATIENT
  Age: 22 Year
  Sex: Male
  Weight: 76.2 kg

DRUGS (3)
  1. ACCUTANE [Suspect]
     Indication: ACNE
     Route: 048
     Dates: start: 19880615, end: 19910615
  2. ACCUTANE [Suspect]
     Route: 048
     Dates: start: 19940615, end: 19970615
  3. ACCUTANE [Suspect]
     Dosage: STILL RECEIVING TREATMENT ON 26 JUN 2000
     Route: 048
     Dates: start: 20000615

REACTIONS (41)
  - ABNORMAL BEHAVIOUR [None]
  - ALCOHOLISM [None]
  - ANORECTAL CELLULITIS [None]
  - ANXIETY [None]
  - ARTHRITIS [None]
  - BACK INJURY [None]
  - BIPOLAR DISORDER [None]
  - BLOOD PRESSURE INCREASED [None]
  - BRONCHITIS ACUTE [None]
  - CATARACT [None]
  - CHRONIC FATIGUE SYNDROME [None]
  - COLITIS [None]
  - CROHN'S DISEASE [None]
  - DECREASED APPETITE [None]
  - DEPRESSION [None]
  - ERYTHEMA [None]
  - GASTRITIS VIRAL [None]
  - GASTROINTESTINAL DISORDER [None]
  - HAEMORRHOIDS [None]
  - INADEQUATE ANALGESIA [None]
  - INFLAMMATORY BOWEL DISEASE [None]
  - INFLUENZA LIKE ILLNESS [None]
  - INSOMNIA [None]
  - INTESTINAL HAEMORRHAGE [None]
  - MOOD SWINGS [None]
  - MULTI-ORGAN DISORDER [None]
  - MUSCULOSKELETAL CHEST PAIN [None]
  - MYOFASCIAL PAIN SYNDROME [None]
  - NASOPHARYNGITIS [None]
  - POLYP [None]
  - RASH [None]
  - RECTAL HAEMORRHAGE [None]
  - RIB FRACTURE [None]
  - ROAD TRAFFIC ACCIDENT [None]
  - SELF INJURIOUS BEHAVIOUR [None]
  - SKIN LACERATION [None]
  - STRESS [None]
  - SUICIDAL IDEATION [None]
  - TOOTH INJURY [None]
  - URINARY RETENTION [None]
  - WEIGHT DECREASED [None]
